FAERS Safety Report 4759810-3 (Version None)
Quarter: 2005Q3

REPORT INFORMATION
  Report Type: 
  Country: None (occurrence: None)
  Receive Date: 20050831
  Receipt Date: 20050831
  Transmission Date: 20060218
  Serious: Yes (Life-Threatening, Hospitalization)
  Sender: FDA-Public Use
  Company Number: None

PATIENT
  Age: 10 Year
  Sex: Male
  Weight: 23 kg

DRUGS (2)
  1. ATRACURIUM BESYLATE [Suspect]
     Indication: OSTEOTOMY
     Dosage: 10 MG ONCE PR
     Dates: start: 20050430, end: 20050430
  2. FENTANYL [Suspect]
     Dosage: 25 MCG IVI PR
     Route: 042
     Dates: start: 20050430, end: 20050430

REACTIONS (4)
  - ARRHYTHMIA [None]
  - ELECTROCARDIOGRAM QT PROLONGED [None]
  - SUPRAVENTRICULAR TACHYCARDIA [None]
  - TACHYCARDIA [None]
